FAERS Safety Report 7479839-4 (Version None)
Quarter: 2011Q2

REPORT INFORMATION
  Report Type: 
  Country: None (occurrence: None)
  Receive Date: 20110515
  Receipt Date: 20110502
  Transmission Date: 20111010
  Serious: Yes (Other)
  Sender: FDA-Public Use
  Company Number: GB-MYLANLABS-2011S1009062

PATIENT
  Age: 69 Year
  Sex: Male

DRUGS (12)
  1. SPIRONOLACTONE [Suspect]
     Route: 065
     Dates: start: 20000701
  2. OFLOXACIN [Concomitant]
     Indication: PROSTATITIS
     Route: 065
  3. ACEBUTOLOL [Concomitant]
     Route: 065
  4. FUROSEMIDE [Concomitant]
     Route: 065
  5. OMEPRAZOLE [Concomitant]
     Route: 065
  6. TRANDOLAPRIL [Concomitant]
     Route: 065
  7. LERCANIDIPINE [Concomitant]
     Route: 065
  8. ATENOLOL [Concomitant]
     Route: 065
  9. ATORVASTATIN [Concomitant]
     Dosage: 10MG NOCTE
     Route: 065
  10. TAMSULOSIN HCL [Concomitant]
     Indication: PROSTATITIS
     Route: 065
  11. CLOPIDOGREL [Concomitant]
     Route: 065
  12. SULINDAC [Concomitant]
     Dosage: AS NEEDED
     Route: 065

REACTIONS (2)
  - NIPPLE PAIN [None]
  - GLOMERULONEPHRITIS MEMBRANOUS [None]
